FAERS Safety Report 24567849 (Version 2)
Quarter: 2024Q4

REPORT INFORMATION
  Report Type: Spontaneous
  Country: US (occurrence: US)
  Receive Date: 20241031
  Receipt Date: 20241120
  Transmission Date: 20250115
  Serious: Yes (Other)
  Sender: TEVA
  Company Number: US-TEVA-VS-3258049

PATIENT
  Age: 6 Decade
  Sex: Male

DRUGS (3)
  1. OLANZAPINE [Suspect]
     Active Substance: OLANZAPINE
     Indication: Anxiety
     Dosage: DURING NIGHT
     Route: 048
  2. LEUPROLIDE [Concomitant]
     Active Substance: LEUPROLIDE
     Indication: Micturition disorder
     Route: 065
  3. TAMSULOSIN [Suspect]
     Active Substance: TAMSULOSIN
     Indication: Micturition disorder
     Route: 065

REACTIONS (1)
  - Pollakiuria [Recovered/Resolved]
